FAERS Safety Report 17227159 (Version 1)
Quarter: 2020Q1

REPORT INFORMATION
  Report Type: Spontaneous
  Country: US (occurrence: US)
  Receive Date: 20200103
  Receipt Date: 20200103
  Transmission Date: 20200409
  Serious: Yes (Hospitalization)
  Sender: FDA-Public Use
  Company Number: US-ROCHE-2511418

PATIENT
  Age: 18 Year
  Sex: Male

DRUGS (3)
  1. AZTREONAM LYSINE [Suspect]
     Active Substance: AZTREONAM LYSINE
     Indication: CYSTIC FIBROSIS
     Dosage: INHALATION USE
     Route: 050
     Dates: start: 20191023
  2. PULMOZYME [Suspect]
     Active Substance: DORNASE ALFA
     Indication: CYSTIC FIBROSIS
     Dosage: INHALATION USE
     Route: 050
     Dates: start: 20180307
  3. CAYSTON [Concomitant]
     Active Substance: AZTREONAM
     Route: 065
     Dates: start: 20191023

REACTIONS (2)
  - Pneumonia [Unknown]
  - Off label use [Unknown]
